FAERS Safety Report 17535047 (Version 1)
Quarter: 2020Q1

REPORT INFORMATION
  Report Type: Spontaneous
  Country: US (occurrence: US)
  Receive Date: 20200313
  Receipt Date: 20200313
  Transmission Date: 20200409
  Serious: Yes (Other)
  Sender: FDA-Public Use
  Company Number: US-BIOGEN-2020BI00847091

PATIENT

DRUGS (3)
  1. SPINRAZA [Suspect]
     Active Substance: NUSINERSEN
     Indication: SPINAL MUSCULAR ATROPHY
     Dosage: 1ST 3 LOADING DOSES
     Route: 065
  2. SPINRAZA [Suspect]
     Active Substance: NUSINERSEN
     Dosage: MAINTENANCE DOSE GIVEN 4 MOTHS AFTER THE 4TH LOADING DOSE AND THEREAFTER
     Route: 065
  3. SPINRAZA [Suspect]
     Active Substance: NUSINERSEN
     Dosage: 4TH LOADING DOSE GIVEN 30 DAYS AFTER 3RD DOSE
     Route: 065

REACTIONS (2)
  - Headache [Unknown]
  - Syringomyelia [Unknown]
